FAERS Safety Report 25008741 (Version 5)
Quarter: 2025Q2

REPORT INFORMATION
  Report Type: Spontaneous
  Country: US (occurrence: US)
  Receive Date: 20250225
  Receipt Date: 20250401
  Transmission Date: 20250717
  Serious: No
  Sender: PFIZER
  Company Number: US-PFIZER INC-PV202500001939

PATIENT
  Age: 11 Year
  Sex: Male
  Weight: 40.7 kg

DRUGS (2)
  1. GENOTROPIN [Suspect]
     Active Substance: SOMATROPIN
     Indication: Hypopituitarism
     Route: 058
  2. GENOTROPIN [Suspect]
     Active Substance: SOMATROPIN
     Indication: Growth hormone deficiency
     Route: 058

REACTIONS (4)
  - Product knowledge deficit [Unknown]
  - Product administered at inappropriate site [Unknown]
  - Device power source issue [Unknown]
  - Device mechanical issue [Unknown]
